FAERS Safety Report 18478032 (Version 2)
Quarter: 2021Q3

REPORT INFORMATION
  Report Type: Other
  Country: CA (occurrence: CA)
  Receive Date: 20201108
  Receipt Date: 20210705
  Transmission Date: 20211014
  Serious: Yes (Other)
  Sender: FDA-Public Use
  Company Number: CA-CELLTRION INC.-2020CA030487

PATIENT

DRUGS (18)
  1. FERROUS GLUCONATE [Concomitant]
     Active Substance: FERROUS GLUCONATE
  2. METHOTREXATE. [Concomitant]
     Active Substance: METHOTREXATE
     Route: 058
  3. PREDNISONE. [Concomitant]
     Active Substance: PREDNISONE
  4. SULFASALAZINE. [Concomitant]
     Active Substance: SULFASALAZINE
  5. BENADRYL [Concomitant]
     Active Substance: DIPHENHYDRAMINE HYDROCHLORIDE
     Indication: PREMEDICATION
     Dosage: 50 MG
     Route: 048
  6. FOLIC ACID. [Concomitant]
     Active Substance: FOLIC ACID
  7. HYDROXYCHLOROQUINE [Concomitant]
     Active Substance: HYDROXYCHLOROQUINE
  8. METHYLPREDNISOLONE SODIUM SUCCINATE. [Concomitant]
     Active Substance: METHYLPREDNISOLONE SODIUM SUCCINATE
     Indication: PREMEDICATION
     Dosage: 100 MG
     Route: 042
  9. TYLENOL [Concomitant]
     Active Substance: ACETAMINOPHEN
     Indication: PREMEDICATION
     Dosage: 650 MG
     Route: 048
  10. TYLENOL EXTRA STRENGTH [Concomitant]
     Active Substance: ACETAMINOPHEN
  11. RITUXIMAB (UNKNOWN) [Suspect]
     Active Substance: RITUXIMAB
     Indication: RHEUMATOID ARTHRITIS
     Dosage: 1000 MG
     Route: 042
  12. PANTOPRAZOLE [Concomitant]
     Active Substance: PANTOPRAZOLE
  13. CALCIUM [Concomitant]
     Active Substance: CALCIUM
  14. RITUXIMAB (UNKNOWN) [Suspect]
     Active Substance: RITUXIMAB
     Indication: POLYARTHRITIS
  15. ALENDRONATE SODIUM. [Concomitant]
     Active Substance: ALENDRONATE SODIUM
  16. RAMIPRIL. [Concomitant]
     Active Substance: RAMIPRIL
  17. ATORVASTATIN [Concomitant]
     Active Substance: ATORVASTATIN
  18. PROLIA [Concomitant]
     Active Substance: DENOSUMAB

REACTIONS (3)
  - Off label use [Unknown]
  - Product use in unapproved indication [Unknown]
  - Bone disorder [Unknown]
